FAERS Safety Report 4484881-1 (Version None)
Quarter: 2004Q3

REPORT INFORMATION
  Report Type: 
  Country: None (occurrence: None)
  Receive Date: 20040921
  Receipt Date: 20030911
  Transmission Date: 20050211
  Serious: No
  Sender: FDA-Public Use
  Company Number: 163-20785-03090357

PATIENT

DRUGS (1)
  1. THALOMID [Suspect]
     Indication: MULTIPLE MYELOMA
     Dosage: ORAL
     Route: 048

REACTIONS (1)
  - RENAL FAILURE [None]
